FAERS Safety Report 26057971 (Version 2)
Quarter: 2025Q4

REPORT INFORMATION
  Report Type: Report from Study
  Country: US (occurrence: US)
  Receive Date: 20251118
  Receipt Date: 20251209
  Transmission Date: 20260117
  Serious: Yes (Hospitalization, Other)
  Sender: ABBVIE
  Company Number: US-ABBVIE-6552099

PATIENT
  Age: 66 Year
  Sex: Female
  Weight: 54 kg

DRUGS (2)
  1. BOTOX [Suspect]
     Active Substance: ONABOTULINUMTOXINA
     Indication: Migraine without aura
     Dosage: TIME INTERVAL: AS NECESSARY: FREQUENCY: EVERY TWO MONTHS
     Route: 030
     Dates: start: 2010, end: 2010
  2. EPIPEN [Concomitant]
     Active Substance: EPINEPHRINE
     Indication: Multiple allergies

REACTIONS (7)
  - Uterine prolapse [Recovered/Resolved]
  - Food poisoning [Recovered/Resolved]
  - Suture rupture [Recovered/Resolved]
  - Gastroenteritis salmonella [Recovered/Resolved]
  - Coma [Recovered/Resolved]
  - Blood electrolytes decreased [Recovered/Resolved]
  - Uterine mass [Unknown]

NARRATIVE: CASE EVENT DATE: 20250801
